FAERS Safety Report 6594020-9 (Version None)
Quarter: 2010Q1

REPORT INFORMATION
  Report Type: 
  Country: None (occurrence: None)
  Receive Date: 20100212
  Receipt Date: 20100128
  Transmission Date: 20100710
  Serious: Yes (Death, Other)
  Sender: FDA-Public Use
  Company Number: 2010011670

PATIENT
  Sex: Male

DRUGS (1)
  1. FRAGMIN [Suspect]
     Indication: PULMONARY EMBOLISM
     Dosage: 18000 IU, 1X/DAY

REACTIONS (1)
  - THROMBOSIS [None]
